FAERS Safety Report 14908209 (Version 1)
Quarter: 2018Q2

REPORT INFORMATION
  Report Type: Spontaneous
  Country: AU (occurrence: AU)
  Receive Date: 20180517
  Receipt Date: 20180517
  Transmission Date: 20180711
  Serious: Yes (Hospitalization)
  Sender: FDA-Public Use
  Company Number: AU-SUNOVION-2018DSP002911

PATIENT
  Age: 17 Year
  Sex: Male
  Weight: 106 kg

DRUGS (1)
  1. LATUDA [Suspect]
     Active Substance: LURASIDONE HYDROCHLORIDE
     Indication: PSYCHOTIC DISORDER
     Dosage: 40 MG, QD
     Route: 048
     Dates: start: 20171219

REACTIONS (3)
  - Off label use [Unknown]
  - Hypomania [Recovered/Resolved]
  - Psychotic disorder [Unknown]

NARRATIVE: CASE EVENT DATE: 201803
